FAERS Safety Report 7691058 (Version 2)
Quarter: 2013Q3

REPORT INFORMATION
  Report Type: Spontaneous
  Country: US (occurrence: None)
  Receive Date: 20101108
  Receipt Date: 20130709
  Transmission Date: 20140515
  Serious: Yes (Other)
  Sender: FDA-Public Use
  Company Number: AUR-APL-2010-02681

PATIENT
  Age: 45 Year
  Sex: Male

DRUGS (1)
  1. METFORMIN (METFORMIN) [Suspect]
     Indication: PRODUCT USED FOR UNKNOWN INDICATION
     Dosage: 500MG - BID - ORAL
     Route: 048

REACTIONS (7)
  - Feeling cold [None]
  - Headache [None]
  - Sleep disorder [None]
  - Hyperhidrosis [None]
  - Nausea [None]
  - Chromaturia [None]
  - Food poisoning [None]
